FAERS Safety Report 5843191-8 (Version None)
Quarter: 2008Q3

REPORT INFORMATION
  Report Type: 
  Country: None (occurrence: None)
  Receive Date: 20080813
  Receipt Date: 20080731
  Transmission Date: 20090109
  Serious: Yes (Hospitalization)
  Sender: FDA-Public Use
  Company Number: PHHY2008JP09918

PATIENT
  Age: 66 Year
  Sex: Male

DRUGS (4)
  1. CYCLOSPORINE [Suspect]
     Indication: PSORIASIS
     Dosage: UNK
     Route: 048
  2. ETRETINATE [Concomitant]
     Indication: PSORIASIS
     Dosage: 30 MG/D
     Route: 048
     Dates: start: 20030201
  3. DERMOVATE [Concomitant]
     Indication: PEMPHIGOID
     Route: 061
  4. DRUG THERAPY NOS [Concomitant]
     Indication: PSORIASIS
     Dosage: 30 MG/DAY
     Dates: start: 20030201

REACTIONS (16)
  - BACTERIAL INFECTION [None]
  - BLISTER [None]
  - BLOOD CREATININE INCREASED [None]
  - BLOOD IMMUNOGLOBULIN E INCREASED [None]
  - BLOOD LACTATE DEHYDROGENASE INCREASED [None]
  - C-REACTIVE PROTEIN INCREASED [None]
  - CARCINOEMBRYONIC ANTIGEN INCREASED [None]
  - COLECTOMY [None]
  - COLON CANCER [None]
  - EOSINOPHIL PERCENTAGE INCREASED [None]
  - ERYTHEMA [None]
  - LYMPHOCYTE PERCENTAGE DECREASED [None]
  - PEMPHIGOID [None]
  - PYREXIA [None]
  - SKIN EXFOLIATION [None]
  - WHITE BLOOD CELL COUNT INCREASED [None]
